FAERS Safety Report 19940377 (Version 2)
Quarter: 2022Q2

REPORT INFORMATION
  Report Type: Other
  Country: CA (occurrence: CA)
  Receive Date: 20211012
  Receipt Date: 20220423
  Transmission Date: 20220721
  Serious: Yes (Hospitalization)
  Sender: FDA-Public Use
  Company Number: CA-002147023-PHHY2017CA171239

PATIENT
  Age: 26 Year
  Sex: Female

DRUGS (24)
  1. XOLAIR [Suspect]
     Active Substance: OMALIZUMAB
     Indication: Asthma
     Dosage: 375 MG, BIW, EVERY 2 WEEKS
     Route: 058
     Dates: start: 20170726
  2. XOLAIR [Suspect]
     Active Substance: OMALIZUMAB
     Dosage: 375 MG, BIW, EVERY 2 WEEKS
     Route: 058
     Dates: start: 20180208
  3. XOLAIR [Suspect]
     Active Substance: OMALIZUMAB
     Dosage: 375 MG, BIW, EVERY 2 WEEKS
     Route: 058
     Dates: start: 20180502
  4. XOLAIR [Suspect]
     Active Substance: OMALIZUMAB
     Dosage: 375 MG, BIW, EVERY 2 WEEKS
     Route: 058
     Dates: start: 20180821
  5. XOLAIR [Suspect]
     Active Substance: OMALIZUMAB
     Dosage: 375 MG, BIW, EVERY 2 WEEKS
     Route: 058
     Dates: start: 20180905
  6. XOLAIR [Suspect]
     Active Substance: OMALIZUMAB
     Dosage: 375 MG, BIW, EVERY 2 WEEKS
     Route: 058
     Dates: start: 20180919
  7. XOLAIR [Suspect]
     Active Substance: OMALIZUMAB
     Dosage: 375 MG, BIW, EVERY 2 WEEKS
     Route: 058
     Dates: start: 20181017
  8. XOLAIR [Suspect]
     Active Substance: OMALIZUMAB
     Dosage: 375 MG, BIW, EVERY 2 WEEKS
     Route: 058
     Dates: start: 20181211
  9. XOLAIR [Suspect]
     Active Substance: OMALIZUMAB
     Dosage: 300 MG, BIW, EVERY 2 WEEKS
     Route: 058
     Dates: start: 20190201
  10. XOLAIR [Suspect]
     Active Substance: OMALIZUMAB
     Dosage: 300 MG, EVERY 3 WEEKS
     Route: 058
     Dates: start: 20190304
  11. XOLAIR [Suspect]
     Active Substance: OMALIZUMAB
     Dosage: 300 MG, EVERY 3 WEEKS
     Route: 058
     Dates: start: 20190815
  12. XOLAIR [Suspect]
     Active Substance: OMALIZUMAB
     Dosage: 300 MG, EVERY 3 WEEKS
     Route: 058
     Dates: start: 20191219
  13. XOLAIR [Suspect]
     Active Substance: OMALIZUMAB
     Dosage: 300 MG, EVERY 3 WEEKS
     Route: 058
     Dates: start: 20200130
  14. XOLAIR [Suspect]
     Active Substance: OMALIZUMAB
     Dosage: 375 MG, EVERY 3 WEEKS
     Route: 058
     Dates: start: 20200507
  15. XOLAIR [Suspect]
     Active Substance: OMALIZUMAB
     Dosage: 375 MG, EVERY 3 WEEKS
     Route: 058
     Dates: start: 20170726
  16. XOLAIR [Suspect]
     Active Substance: OMALIZUMAB
     Dosage: 375 MG, Q3W
     Route: 058
     Dates: start: 20201228
  17. XOLAIR [Suspect]
     Active Substance: OMALIZUMAB
     Dosage: 375 MG, Q3W
     Route: 058
     Dates: start: 20210125
  18. XOLAIR [Suspect]
     Active Substance: OMALIZUMAB
     Dosage: 375 MG, Q3W
     Route: 058
  19. XOLAIR [Suspect]
     Active Substance: OMALIZUMAB
     Dosage: 375 MG, Q3W
     Route: 058
  20. ZENHALE [Concomitant]
     Active Substance: FORMOTEROL FUMARATE\MOMETASONE FUROATE
     Indication: Asthma
     Dosage: 2 DF, BID
     Route: 055
     Dates: start: 201612
  21. VENTOLIN [Concomitant]
     Active Substance: ALBUTEROL SULFATE
     Indication: Asthma
     Dosage: 2 DF, PRN
     Route: 055
     Dates: start: 1997
  22. SINGULAIR [Concomitant]
     Active Substance: MONTELUKAST SODIUM
     Indication: Asthma
     Dosage: 1 DF, QD
     Route: 048
     Dates: start: 201607
  23. DYMISTA [Concomitant]
     Active Substance: AZELASTINE HYDROCHLORIDE\FLUTICASONE PROPIONATE
     Indication: Nasal polyps
     Dosage: 2 DF, BID
     Route: 045
     Dates: start: 2015
  24. PULMICORT TURBUHALER [Concomitant]
     Active Substance: BUDESONIDE
     Indication: Nasal polyps
     Dosage: 1 DF, BID
     Route: 045
     Dates: start: 2013

REACTIONS (31)
  - Allergy to animal [Unknown]
  - Hypersensitivity [Recovering/Resolving]
  - Rhinorrhoea [Recovering/Resolving]
  - Nasal discharge discolouration [Unknown]
  - Nasopharyngitis [Unknown]
  - Productive cough [Recovered/Resolved]
  - Dizziness [Unknown]
  - Cough [Recovered/Resolved]
  - Eczema [Unknown]
  - Ocular discomfort [Unknown]
  - Eye paraesthesia [Unknown]
  - Feeling abnormal [Unknown]
  - Headache [Recovered/Resolved]
  - Labyrinthitis [Unknown]
  - Product dose omission issue [Unknown]
  - Nasal congestion [Unknown]
  - Nasal inflammation [Recovering/Resolving]
  - Weight decreased [Unknown]
  - Inappropriate schedule of product administration [Unknown]
  - Wrong technique in product usage process [Unknown]
  - Incorrect dose administered [Unknown]
  - Arthralgia [Unknown]
  - Dyspnoea exertional [Recovered/Resolved]
  - Seasonal allergy [Unknown]
  - Movement disorder [Unknown]
  - Sinus pain [Unknown]
  - Sinusitis [Not Recovered/Not Resolved]
  - Sneezing [Recovering/Resolving]
  - Vertigo [Unknown]
  - Gait disturbance [Unknown]
  - Nasal discomfort [Unknown]

NARRATIVE: CASE EVENT DATE: 20180217
